FAERS Safety Report 8137938-8 (Version None)
Quarter: 2012Q1

REPORT INFORMATION
  Report Type: 
  Country: None (occurrence: None)
  Receive Date: 20120215
  Receipt Date: 20120206
  Transmission Date: 20120608
  Serious: Yes (Other)
  Sender: FDA-Public Use
  Company Number: US-CELGENEUS-163-21880-12020867

PATIENT
  Sex: Female

DRUGS (1)
  1. REVLIMID [Suspect]
     Dosage: 5 MILLIGRAM
     Route: 048
     Dates: start: 20120110

REACTIONS (9)
  - THROMBOCYTOPENIA [None]
  - NIGHT SWEATS [None]
  - PRURITUS [None]
  - DIARRHOEA [None]
  - HAEMORRHAGE [None]
  - FATIGUE [None]
  - CHEST PAIN [None]
  - DYSPNOEA [None]
  - SINUSITIS [None]
